FAERS Safety Report 12455683 (Version 1)
Quarter: 2016Q2

REPORT INFORMATION
  Report Type: Spontaneous
  Country: US (occurrence: None)
  Receive Date: 20160609
  Receipt Date: 20160609
  Transmission Date: 20160815
  Serious: Yes (Life-Threatening, Hospitalization)
  Sender: FDA-Public Use
  Company Number: None

PATIENT
  Age: 60 Year
  Sex: Male
  Weight: 82.3 kg

DRUGS (1)
  1. CARBOPLATIN. [Suspect]
     Active Substance: CARBOPLATIN
     Indication: NON-SMALL CELL LUNG CANCER
     Route: 042
     Dates: start: 20160113, end: 20160217

REACTIONS (11)
  - Cardio-respiratory arrest [None]
  - Tachycardia [None]
  - Hypotension [None]
  - Acute myocardial infarction [None]
  - Dyspnoea [None]
  - Rash [None]
  - Hyperhidrosis [None]
  - Wheezing [None]
  - Cough [None]
  - Coronary artery occlusion [None]
  - Anaphylactic reaction [None]

NARRATIVE: CASE EVENT DATE: 20160217
